FAERS Safety Report 9410338 (Version 1)
Quarter: 2013Q3

REPORT INFORMATION
  Report Type: Spontaneous
  Country: US (occurrence: US)
  Receive Date: 20130719
  Receipt Date: 20130719
  Transmission Date: 20140515
  Serious: Yes (Hospitalization)
  Sender: FDA-Public Use
  Company Number: US-GLAXOSMITHKLINE-A0797758A

PATIENT
  Age: 54 Year
  Sex: Male
  Weight: 102.3 kg

DRUGS (1)
  1. AVANDIA [Suspect]
     Indication: DIABETES MELLITUS
     Dosage: 4MG PER DAY
     Route: 048
     Dates: start: 20010118, end: 2005

REACTIONS (6)
  - Cerebrovascular accident [Unknown]
  - Blindness unilateral [Unknown]
  - Cardiac disorder [Unknown]
  - Back disorder [Unknown]
  - Condition aggravated [Unknown]
  - Ischaemic cardiomyopathy [Unknown]
